FAERS Safety Report 4400684-8 (Version None)
Quarter: 2004Q3

REPORT INFORMATION
  Report Type: 
  Country: None (occurrence: None)
  Receive Date: 20040719
  Receipt Date: 20040708
  Transmission Date: 20050211
  Serious: Yes (Other)
  Sender: FDA-Public Use
  Company Number: PHEH2004US07338

PATIENT
  Age: 51 Year
  Sex: Female

DRUGS (11)
  1. ZOMETA [Suspect]
     Indication: METASTASES TO BONE
     Dosage: 4 MG, QMO
     Route: 042
     Dates: start: 20030601
  2. TRASTUZUMAB [Concomitant]
  3. TAXOL [Concomitant]
  4. ALTACE [Concomitant]
  5. IRON SUPPLEMENTS [Concomitant]
  6. SYNTHROID [Concomitant]
  7. CALCIUM [Concomitant]
  8. PAXIL [Concomitant]
  9. FUROSEMIDE [Concomitant]
  10. NEUPOGEN [Concomitant]
  11. DECADRON [Concomitant]

REACTIONS (2)
  - HEPATIC CIRRHOSIS [None]
  - LIVER FUNCTION TEST ABNORMAL [None]
